FAERS Safety Report 10345745 (Version 1)
Quarter: 2014Q3

REPORT INFORMATION
  Report Type: Spontaneous
  Country: US (occurrence: US)
  Receive Date: 20140728
  Receipt Date: 20140728
  Transmission Date: 20150326
  Serious: Yes (Hospitalization)
  Sender: FDA-Public Use
  Company Number: US-BAYER-2014-108093

PATIENT
  Age: 50 Year
  Sex: Male

DRUGS (10)
  1. DILANTIN [Concomitant]
     Active Substance: PHENYTOIN
     Dosage: 200 MG, BID
  2. NICO [Concomitant]
     Indication: PAIN
     Dosage: 1 TO 2 TABLETS
  3. ATIVAN [Concomitant]
     Active Substance: LORAZEPAM
     Dosage: 2 MG, UNK
     Route: 017
  4. SYNTHROID [Concomitant]
     Active Substance: LEVOTHYROXINE SODIUM
     Dosage: DAILY DOSE 125
  5. LISINOPRIL. [Concomitant]
     Active Substance: LISINOPRIL
     Dosage: DAILY DOSE 10 MG
  6. PROZAC [Concomitant]
     Active Substance: FLUOXETINE HYDROCHLORIDE
     Dosage: DAILY DOSE 40 MG
  7. KLONOPIN [Concomitant]
     Active Substance: CLONAZEPAM
     Dosage: 1 MG, TID
  8. CLONIDINE. [Concomitant]
     Active Substance: CLONIDINE
     Dosage: 0.2 MG, BID
  9. CIPRO [Suspect]
     Active Substance: CIPROFLOXACIN HYDROCHLORIDE
     Dosage: 500 MG, BID
     Dates: end: 20140628
  10. PULSAR [Concomitant]
     Dosage: DAILY DOSE 5 MG

REACTIONS (2)
  - Mental status changes [Recovered/Resolved]
  - Convulsion [None]

NARRATIVE: CASE EVENT DATE: 20140628
